FAERS Safety Report 6992891-5 (Version None)
Quarter: 2010Q3

REPORT INFORMATION
  Report Type: 
  Country: None (occurrence: None)
  Receive Date: 20100917
  Receipt Date: 20100909
  Transmission Date: 20110219
  Serious: Yes (Other)
  Sender: FDA-Public Use
  Company Number: GXKR2010US10279

PATIENT
  Age: 43 Year
  Sex: Female

DRUGS (7)
  1. TRIAMCINOLONE (NGX) [Suspect]
     Dosage: 20MG
     Dates: start: 20051206
  2. TRIAMCINOLONE (NGX) [Interacting]
     Dosage: UNK
     Dates: start: 20051201
  3. NEFAZODONE HCL [Interacting]
     Dosage: 600 MG/DAY
  4. ESTROGENS CONJUGATED [Concomitant]
     Dosage: 0.45 MG
  5. OXAZEPAM [Concomitant]
     Dosage: 20-30 MG DAILY
  6. PREGABALIN [Concomitant]
     Dosage: 300-600 MG DAILY
  7. HYDROCORTISONE [Concomitant]
     Dosage: 15 MG, UNK
     Route: 048

REACTIONS (8)
  - CENTRAL OBESITY [None]
  - CUSHING'S SYNDROME [None]
  - DRUG INTERACTION [None]
  - FATIGUE [None]
  - OEDEMA PERIPHERAL [None]
  - SECONDARY ADRENOCORTICAL INSUFFICIENCY [None]
  - SWELLING FACE [None]
  - WEIGHT INCREASED [None]
